FAERS Safety Report 25661911 (Version 1)
Quarter: 2025Q3

REPORT INFORMATION
  Report Type: Spontaneous
  Country: GB (occurrence: GB)
  Receive Date: 20250809
  Receipt Date: 20250809
  Transmission Date: 20251021
  Serious: Yes (Other)
  Sender: ADVANZ PHARMA
  Company Number: None

PATIENT

DRUGS (4)
  1. PREDNISOLONE [Suspect]
     Active Substance: PREDNISOLONE
  2. CYCLIZINE [Suspect]
     Active Substance: CYCLIZINE
  3. RISANKIZUMAB [Suspect]
     Active Substance: RISANKIZUMAB
  4. INFLIXIMAB [Suspect]
     Active Substance: INFLIXIMAB

REACTIONS (3)
  - Loss of consciousness [Unknown]
  - Burning sensation [Unknown]
  - Rash [Unknown]
